FAERS Safety Report 9402694 (Version 3)
Quarter: 2015Q3

REPORT INFORMATION
  Report Type: Report from Study
  Country: JP (occurrence: JP)
  Receive Date: 20130716
  Receipt Date: 20150924
  Transmission Date: 20151125
  Serious: Yes (Hospitalization)
  Sender: FDA-Public Use
  Company Number: JP-ASTELLAS-2013JP007557

PATIENT
  Age: 40 Year
  Sex: Female
  Weight: 50 kg

DRUGS (23)
  1. TAGAMET [Concomitant]
     Active Substance: CIMETIDINE
     Indication: CHRONIC GASTRITIS
     Route: 048
     Dates: start: 20060815
  2. TACROLIMUS. [Suspect]
     Active Substance: TACROLIMUS
     Route: 048
     Dates: start: 20130129
  3. PREDONINE [Concomitant]
     Active Substance: PREDNISOLONE\PREDNISOLONE ACETATE\PREDNISOLONE SODIUM SUCCINATE
     Route: 048
     Dates: start: 20080902, end: 20100301
  4. PREDONINE [Concomitant]
     Active Substance: PREDNISOLONE\PREDNISOLONE ACETATE\PREDNISOLONE SODIUM SUCCINATE
     Route: 048
     Dates: start: 20101207, end: 20110620
  5. PREDONINE [Concomitant]
     Active Substance: PREDNISOLONE\PREDNISOLONE ACETATE\PREDNISOLONE SODIUM SUCCINATE
     Route: 048
     Dates: start: 20110621, end: 20111024
  6. BEZATOL [Concomitant]
     Active Substance: BEZAFIBRATE
     Indication: HYPERLIPIDAEMIA
     Route: 048
  7. PREDONINE [Concomitant]
     Active Substance: PREDNISOLONE\PREDNISOLONE ACETATE\PREDNISOLONE SODIUM SUCCINATE
     Route: 048
     Dates: start: 20111025, end: 20111226
  8. PREDONINE [Concomitant]
     Active Substance: PREDNISOLONE\PREDNISOLONE ACETATE\PREDNISOLONE SODIUM SUCCINATE
     Route: 048
     Dates: start: 20121231, end: 20130129
  9. TACROLIMUS. [Suspect]
     Active Substance: TACROLIMUS
     Route: 048
     Dates: start: 20121009, end: 20121203
  10. PREDONINE [Concomitant]
     Active Substance: PREDNISOLONE\PREDNISOLONE ACETATE\PREDNISOLONE SODIUM SUCCINATE
     Route: 048
     Dates: start: 20080108, end: 20080901
  11. METHYLPREDNISOLONE SODIUM SUCCINATE. [Concomitant]
     Active Substance: METHYLPREDNISOLONE SODIUM SUCCINATE
     Indication: LUPUS NEPHRITIS
     Route: 065
     Dates: start: 20121228, end: 20121230
  12. TACROLIMUS. [Suspect]
     Active Substance: TACROLIMUS
     Route: 048
     Dates: start: 20071030, end: 20080901
  13. TACROLIMUS. [Suspect]
     Active Substance: TACROLIMUS
     Route: 048
     Dates: start: 20080902, end: 20121008
  14. PREDONINE [Concomitant]
     Active Substance: PREDNISOLONE\PREDNISOLONE ACETATE\PREDNISOLONE SODIUM SUCCINATE
     Indication: LUPUS NEPHRITIS
     Route: 048
     Dates: end: 20071029
  15. PREDONINE [Concomitant]
     Active Substance: PREDNISOLONE\PREDNISOLONE ACETATE\PREDNISOLONE SODIUM SUCCINATE
     Dosage: UNK UNK, EVERY OTHER DAY
     Route: 048
     Dates: start: 20100302, end: 20100712
  16. PREDONINE [Concomitant]
     Active Substance: PREDNISOLONE\PREDNISOLONE ACETATE\PREDNISOLONE SODIUM SUCCINATE
     Dosage: UNK UNK, EVERY OTHER DAY
     Route: 048
     Dates: start: 20100713, end: 20101206
  17. PREDONINE [Concomitant]
     Active Substance: PREDNISOLONE\PREDNISOLONE ACETATE\PREDNISOLONE SODIUM SUCCINATE
     Route: 048
     Dates: start: 20111227, end: 20121227
  18. PREDONINE [Concomitant]
     Active Substance: PREDNISOLONE\PREDNISOLONE ACETATE\PREDNISOLONE SODIUM SUCCINATE
     Route: 048
     Dates: start: 20130130
  19. HALCION [Concomitant]
     Active Substance: TRIAZOLAM
     Indication: INSOMNIA
     Dosage: 0.25 MG, ONCE DAILY
     Route: 048
     Dates: start: 20060815
  20. METHYCOBAL [Concomitant]
     Active Substance: METHYLCOBALAMIN
     Indication: NEUROPATHY PERIPHERAL
     Route: 048
     Dates: start: 20080708
  21. CINAL [Concomitant]
     Active Substance: ASCORBIC ACID\CALCIUM PANTOTHENATE
     Indication: SKIN FRAGILITY
     Route: 048
     Dates: start: 20060815
  22. TACROLIMUS. [Suspect]
     Active Substance: TACROLIMUS
     Indication: LUPUS NEPHRITIS
     Route: 048
     Dates: start: 20070507, end: 20071029
  23. PREDONINE [Concomitant]
     Active Substance: PREDNISOLONE\PREDNISOLONE ACETATE\PREDNISOLONE SODIUM SUCCINATE
     Route: 048
     Dates: start: 20071030, end: 20080107

REACTIONS (1)
  - Renal disorder [Recovered/Resolved]

NARRATIVE: CASE EVENT DATE: 20120814
